FAERS Safety Report 17267686 (Version 1)
Quarter: 2020Q1

REPORT INFORMATION
  Report Type: Spontaneous
  Country: US (occurrence: US)
  Receive Date: 20200114
  Receipt Date: 20200114
  Transmission Date: 20200409
  Serious: Yes (Hospitalization)
  Sender: FDA-Public Use
  Company Number: US-VERTEX PHARMACEUTICALS-2020-000234

PATIENT
  Sex: Female

DRUGS (15)
  1. ALBUTEROL SULFATE. [Concomitant]
     Active Substance: ALBUTEROL SULFATE
  2. SYMBICORT [Concomitant]
     Active Substance: BUDESONIDE\FORMOTEROL FUMARATE DIHYDRATE
     Dosage: 80-4.5 MCG HFA AER AD
  3. SODIUM CHLORIDE. [Concomitant]
     Active Substance: SODIUM CHLORIDE
     Dosage: VIAL-NEB
  4. PULMOZYME [Concomitant]
     Active Substance: DORNASE ALFA
     Dosage: 1 MILLIGRAM PER MILLILITRE
  5. TOBRAMYCIN SULFATE. [Concomitant]
     Active Substance: TOBRAMYCIN SULFATE
     Dosage: 1.2 GRAM VIAL
  6. NORGESTIMATE + ETHINYL ESTRADIOL [Concomitant]
     Dosage: 0.25-0.035
  7. ZOLOFT [Concomitant]
     Active Substance: SERTRALINE HYDROCHLORIDE
     Dosage: 100 MG
  8. TRIKAFTA [Suspect]
     Active Substance: ELEXACAFTOR\IVACAFTOR\TEZACAFTOR
     Indication: CYSTIC FIBROSIS
     Dosage: 2 TABLETS (ELEXACAFTOR 100MG/ TEZACAFTOR 50MG/ IVACAFTOR 75MG) AM; 1 TABLET (IVACAFTOR 150MG) PM
     Route: 048
     Dates: start: 2019
  9. XOPENEX [Concomitant]
     Active Substance: LEVALBUTEROL HYDROCHLORIDE
     Dosage: 0.63MG/3 ML VIAL- NEB
  10. CAYSTON [Concomitant]
     Active Substance: AZTREONAM
     Dosage: 75 MILLIGRAM PER MILLILITRE, VIAL NEB
  11. MEROPENEM. [Concomitant]
     Active Substance: MEROPENEM
     Dosage: 1 GRAM VIAL
  12. CREON [Concomitant]
     Active Substance: PANCRELIPASE AMYLASE\PANCRELIPASE LIPASE\PANCRELIPASE PROTEASE
     Dosage: 24-76-120K
  13. TOBRAMYCIN. [Concomitant]
     Active Substance: TOBRAMYCIN
     Dosage: 300MG/ 5ML AMPUL-NEB
  14. LANSOPRAZOLE. [Concomitant]
     Active Substance: LANSOPRAZOLE
     Dosage: 30 MG
  15. HUMALOG [Concomitant]
     Active Substance: INSULIN LISPRO
     Dosage: 100/ ML UNITS

REACTIONS (1)
  - Hospitalisation [Unknown]
